FAERS Safety Report 14288302 (Version 1)
Quarter: 2017Q4

REPORT INFORMATION
  Report Type: Spontaneous
  Country: US (occurrence: US)
  Receive Date: 20171215
  Receipt Date: 20171215
  Transmission Date: 20180321
  Serious: Yes (Life-Threatening, Hospitalization, Other)
  Sender: FDA-Public Use
  Company Number: US-AUROBINDO-AUR-APL-2017-45364

PATIENT
  Age: 42 Year
  Sex: Male

DRUGS (1)
  1. DEXAMETHASONE. [Suspect]
     Active Substance: DEXAMETHASONE
     Indication: ASTHMA
     Dosage: UNK
     Route: 048

REACTIONS (5)
  - Superinfection [Recovering/Resolving]
  - Colitis [Recovered/Resolved]
  - Pulmonary alveolar haemorrhage [Recovering/Resolving]
  - Strongyloidiasis [Recovering/Resolving]
  - Respiratory failure [Recovering/Resolving]
